FAERS Safety Report 10227006 (Version 2)
Quarter: 2014Q2

REPORT INFORMATION
  Report Type: Spontaneous
  Country: FR (occurrence: FR)
  Receive Date: 20140610
  Receipt Date: 20140610
  Transmission Date: 20141212
  Serious: Yes (Hospitalization)
  Sender: FDA-Public Use
  Company Number: FR-AMGEN-FRASP2014031724

PATIENT
  Age: 61 Year
  Sex: Male
  Weight: 76 kg

DRUGS (4)
  1. NEULASTA [Suspect]
     Indication: NEUTROPENIA
     Dosage: 6 MG, ONE TIME
     Route: 058
     Dates: start: 20140424
  2. NEULASTA [Suspect]
     Indication: PROPHYLAXIS
  3. GEMZAR [Suspect]
     Indication: BRONCHIAL CARCINOMA
     Dosage: UNK
     Route: 042
     Dates: start: 20140418
  4. CISPLATINE [Concomitant]
     Indication: BRONCHIAL CARCINOMA
     Dosage: UNK
     Route: 042
     Dates: start: 20140425

REACTIONS (3)
  - Myositis [Not Recovered/Not Resolved]
  - Oedema peripheral [Unknown]
  - Myalgia [Unknown]
